FAERS Safety Report 4690289-6 (Version None)
Quarter: 2005Q2

REPORT INFORMATION
  Report Type: 
  Country: None (occurrence: None)
  Receive Date: 20050615
  Receipt Date: 20050513
  Transmission Date: 20051028
  Serious: Yes (Hospitalization)
  Sender: FDA-Public Use
  Company Number: J200501448

PATIENT
  Age: 6 Year
  Sex: Male

DRUGS (10)
  1. SAWACILLIN [Suspect]
     Indication: STREPTOCOCCAL INFECTION
     Dosage: 200MG THREE TIMES PER DAY
     Route: 048
     Dates: start: 20050324, end: 20050401
  2. NIPOLAZIN [Concomitant]
     Dosage: 1MG TWICE PER DAY
     Route: 048
     Dates: start: 20050311, end: 20050402
  3. INTAL [Concomitant]
     Route: 031
     Dates: start: 20050311, end: 20050331
  4. LIVOSTIN [Concomitant]
     Route: 045
     Dates: start: 20050311, end: 20050331
  5. BIOFERMIN R [Concomitant]
     Dosage: 1MG PER DAY
     Route: 048
     Dates: start: 20050324, end: 20050331
  6. MUCODYNE [Concomitant]
     Indication: STREPTOCOCCAL INFECTION
     Dosage: 500MG PER DAY
     Route: 048
     Dates: start: 20050324, end: 20050331
  7. MEPTIN [Concomitant]
     Indication: STREPTOCOCCAL INFECTION
     Dosage: 40MG PER DAY
     Route: 048
     Dates: start: 20050324, end: 20050331
  8. ASVERIN [Concomitant]
     Indication: STREPTOCOCCAL INFECTION
     Dosage: 40MG PER DAY
     Route: 048
     Dates: start: 20050324, end: 20050331
  9. CALONAL [Concomitant]
     Indication: ANTIPYRESIS
     Dosage: 150MG PER DAY
     Route: 048
     Dates: start: 20050324, end: 20050324
  10. ONON [Concomitant]
     Dosage: 50MG TWICE PER DAY
     Route: 048
     Dates: start: 20041106, end: 20050331

REACTIONS (3)
  - DRUG ERUPTION [None]
  - PRURITUS [None]
  - PYREXIA [None]
